FAERS Safety Report 5072712-0 (Version None)
Quarter: 2006Q3

REPORT INFORMATION
  Report Type: 
  Country: None (occurrence: None)
  Receive Date: 20060807
  Receipt Date: 20060727
  Transmission Date: 20061208
  Serious: Yes (Hospitalization)
  Sender: FDA-Public Use
  Company Number: FR-AVENTIS-200612648FR

PATIENT
  Age: 45 Year
  Sex: Female

DRUGS (1)
  1. CLAFORAN [Suspect]
     Indication: MENINGITIS MENINGOCOCCAL
     Route: 042

REACTIONS (2)
  - HEPATITIS [None]
  - HEPATOCELLULAR DAMAGE [None]
